FAERS Safety Report 5091886-9 (Version None)
Quarter: 2006Q3

REPORT INFORMATION
  Report Type: 
  Country: None (occurrence: None)
  Receive Date: 20060825
  Receipt Date: 20060818
  Transmission Date: 20061208
  Serious: Yes (Hospitalization, Other)
  Sender: FDA-Public Use
  Company Number: 2006094615

PATIENT
  Age: 74 Year
  Sex: Male

DRUGS (1)
  1. XANAX [Suspect]
     Indication: DRUG USE FOR UNKNOWN INDICATION
     Dosage: 0.58 MG

REACTIONS (7)
  - ANXIETY [None]
  - EPILEPSY [None]
  - FALL [None]
  - INCORRECT DOSE ADMINISTERED [None]
  - LOSS OF CONSCIOUSNESS [None]
  - SELF-MEDICATION [None]
  - WRONG TECHNIQUE IN DRUG USAGE PROCESS [None]
